FAERS Safety Report 10945737 (Version 1)
Quarter: 2015Q1

REPORT INFORMATION
  Report Type: Spontaneous
  Country: US (occurrence: None)
  Receive Date: 20150212
  Receipt Date: 20150212
  Transmission Date: 20150721
  Serious: No
  Sender: FDA-Public Use
  Company Number: TPA2011A01795

PATIENT
  Age: 80 Year
  Sex: Male

DRUGS (9)
  1. MULTAQ (ANTIARRHYTHMICS, CLASS I AND III) [Concomitant]
  2. ASPIRIN (ACETYLSALICYLIC ACID) [Concomitant]
     Active Substance: ASPIRIN
  3. CELEBREX [Concomitant]
     Active Substance: CELECOXIB
  4. SIMVASTATIN (SIMVASTATIN) [Concomitant]
     Active Substance: SIMVASTATIN
  5. TYLENOL [Concomitant]
     Active Substance: ACETAMINOPHEN
  6. ULORIC [Suspect]
     Active Substance: FEBUXOSTAT
     Indication: GOUT
     Route: 048
     Dates: start: 201104, end: 201104
  7. FUROSEMIDE (FUROSEMIDE) [Concomitant]
     Active Substance: FUROSEMIDE
  8. LISINOPRIL (LISINOPRIL) [Concomitant]
     Active Substance: LISINOPRIL
  9. ATENOLOL (ATENOLOL) [Concomitant]
     Active Substance: ATENOLOL

REACTIONS (1)
  - Device malfunction [None]
